FAERS Safety Report 23873894 (Version 2)
Quarter: 2024Q2

REPORT INFORMATION
  Report Type: Other
  Country: IT (occurrence: None)
  Receive Date: 20240520
  Receipt Date: 20240611
  Transmission Date: 20240716
  Serious: Yes (Hospitalization)
  Sender: FDA-Public Use
  Company Number: IT-ROCHE-3565027

PATIENT
  Age: 22 Year
  Sex: Male

DRUGS (8)
  1. OBINUTUZUMAB [Suspect]
     Active Substance: OBINUTUZUMAB
     Indication: Transplant rejection
     Dosage: ON DAY 1
     Route: 042
  2. MYFENAX [Suspect]
     Active Substance: MYCOPHENOLATE MOFETIL
     Indication: Prophylaxis against transplant rejection
     Route: 065
  3. RITUXIMAB [Concomitant]
     Active Substance: RITUXIMAB
     Route: 065
  4. METHYLPREDNISOLONE [Concomitant]
     Active Substance: METHYLPREDNISOLONE
     Dosage: DAY 0, 1, AND 2
     Route: 042
  5. LAPINE T-LYMPHOCYTE IMMUNE GLOBULIN [Concomitant]
     Active Substance: LAPINE T-LYMPHOCYTE IMMUNE GLOBULIN
  6. ENVARSUS XR [Concomitant]
     Active Substance: TACROLIMUS
  7. PREDNISONE [Concomitant]
     Active Substance: PREDNISONE
     Dosage: PROGRESSIVELY TAPERED TO 5 MG A DAY AFTER TWO MONTHS
  8. ECULIZUMAB [Concomitant]
     Active Substance: ECULIZUMAB
     Route: 042

REACTIONS (9)
  - Food poisoning [Unknown]
  - Campylobacter infection [Unknown]
  - Nausea [Unknown]
  - Vomiting [Unknown]
  - Tachycardia [Unknown]
  - Cytomegalovirus viraemia [Unknown]
  - COVID-19 [Unknown]
  - Leukopenia [Unknown]
  - Off label use [Unknown]
